FAERS Safety Report 8850009 (Version 1)
Quarter: 2012Q4

REPORT INFORMATION
  Report Type: 
  Country: US (occurrence: US)
  Receive Date: 20121019
  Receipt Date: 20121019
  Transmission Date: 20130627
  Serious: No
  Sender: FDA-Public Use
  Company Number: US-MYLANLABS-2012S1009228

PATIENT
  Age: 74 Year
  Sex: Female

DRUGS (1)
  1. ACYCLOVIR [Suspect]
     Indication: HERPES ZOSTER
     Route: 048
     Dates: start: 20120425

REACTIONS (5)
  - Dizziness [Recovered/Resolved]
  - Skin burning sensation [Recovered/Resolved]
  - Arthralgia [Recovered/Resolved]
  - Bone pain [Recovered/Resolved]
  - Pain of skin [Recovered/Resolved]
